FAERS Safety Report 6947382-4 (Version None)
Quarter: 2010Q3

REPORT INFORMATION
  Report Type: 
  Country: None (occurrence: None)
  Receive Date: 20100827
  Receipt Date: 20100819
  Transmission Date: 20110219
  Serious: Yes (Hospitalization)
  Sender: FDA-Public Use
  Company Number: US-AMGEN-QUU390596

PATIENT
  Sex: Male
  Weight: 105.8 kg

DRUGS (1)
  1. ENBREL [Suspect]
     Indication: ANKYLOSING SPONDYLITIS
     Route: 058
     Dates: start: 20040901

REACTIONS (9)
  - ABDOMINAL DISCOMFORT [None]
  - COUGH [None]
  - DECREASED APPETITE [None]
  - HIP ARTHROPLASTY [None]
  - INJECTION SITE PAIN [None]
  - NASAL CONGESTION [None]
  - PAIN [None]
  - PNEUMONIA [None]
  - WEIGHT DECREASED [None]
